FAERS Safety Report 13753849 (Version 2)
Quarter: 2017Q3

REPORT INFORMATION
  Report Type: Spontaneous
  Country: DE (occurrence: DE)
  Receive Date: 20170714
  Receipt Date: 20170809
  Transmission Date: 20171127
  Serious: Yes (Hospitalization)
  Sender: FDA-Public Use
  Company Number: DE-ACTELION-A-CH2017-156287

PATIENT
  Age: 80 Year
  Sex: Female

DRUGS (21)
  1. TORASEMID-1A PHARMA [Concomitant]
     Active Substance: TORSEMIDE
     Dosage: 100 MG, BID
  2. METAMIZOL ARISTO [Concomitant]
     Dosage: UNK, PRN
  3. TILICOMP [Concomitant]
     Dosage: 1 DF, PRN
  4. ADENURIC [Concomitant]
     Active Substance: FEBUXOSTAT
     Dosage: 80 MG, QAM
  5. AQUAPHOR [Concomitant]
     Active Substance: PETROLATUM
     Dosage: 10 MG, QAM
     Dates: start: 20170510
  6. ADEMPAS [Concomitant]
     Active Substance: RIOCIGUAT
     Dosage: 1 MG, TID
     Dates: start: 20170620
  7. PANTOPRAZOLE SODIUM. [Concomitant]
     Active Substance: PANTOPRAZOLE SODIUM
     Dosage: 20 MG, QPM
  8. DEKRISTOL [Concomitant]
     Active Substance: CHOLECALCIFEROL
  9. MAGNESIUM VERLA N [Concomitant]
     Dosage: UNK, TID
  10. BICANORM [Concomitant]
     Active Substance: SODIUM BICARBONATE
     Dosage: 1 G, BID
  11. BELOC-ZOK COMP [Concomitant]
     Active Substance: HYDROCHLOROTHIAZIDE\METOPROLOL SUCCINATE
     Dosage: 95 MG, QAM
  12. NOVAMINSULFON [Concomitant]
     Active Substance: METAMIZOLE
     Dosage: 500 MG, TID
  13. MARCUMAR [Concomitant]
     Active Substance: PHENPROCOUMON
     Dosage: 3 MG, UNK
  14. SILDENAFIL. [Concomitant]
     Active Substance: SILDENAFIL
     Dosage: 20 MG, QD
  15. L-THYROX HEXAL [Concomitant]
     Active Substance: LEVOTHYROXINE SODIUM
     Dosage: 0.1 MG, QAM
  16. HUMALOG [Concomitant]
     Active Substance: INSULIN LISPRO
  17. OPSUMIT [Suspect]
     Active Substance: MACITENTAN
     Indication: PULMONARY HYPERTENSION
     Dosage: 10 MG, QD
     Route: 048
     Dates: start: 20170526, end: 20170614
  18. SILDENAFIL. [Concomitant]
     Active Substance: SILDENAFIL
     Indication: PULMONARY ARTERIAL HYPERTENSION
     Dosage: 20 MG, BID
     Route: 048
  19. ALDACTONE A [Concomitant]
     Active Substance: SPIRONOLACTONE
     Dosage: 50 MG, QAM
  20. KALINOR [Concomitant]
     Active Substance: POTASSIUM CITRATE
     Dosage: 40 MMOL, QAM
  21. DELIX [Concomitant]
     Active Substance: RAMIPRIL
     Dosage: 2.5 MG, BID

REACTIONS (3)
  - Chronic kidney disease [Recovering/Resolving]
  - Blood creatinine increased [Recovering/Resolving]
  - Blood urea increased [Recovering/Resolving]

NARRATIVE: CASE EVENT DATE: 20170612
